FAERS Safety Report 15839040 (Version 2)
Quarter: 2019Q1

REPORT INFORMATION
  Report Type: Spontaneous
  Country: NL (occurrence: NL)
  Receive Date: 20190117
  Receipt Date: 20190314
  Transmission Date: 20190417
  Serious: Yes (Hospitalization)
  Sender: FDA-Public Use
  Company Number: NL-SA-2019SA010725

PATIENT
  Sex: Female
  Weight: 54 kg

DRUGS (14)
  1. PREDNISOLONE. [Concomitant]
     Active Substance: PREDNISOLONE
     Dosage: EVERY DAY 0.5MG
  2. ACETYLSALICYLIC ACID [Concomitant]
     Active Substance: ASPIRIN
     Dosage: 80 G, QD
  3. RENVELA [Suspect]
     Active Substance: SEVELAMER CARBONATE
     Indication: HYPERPHOSPHATAEMIA
     Dosage: 4 GRAMS PER DAY (800 + 1600 + 1600MG) AND LATER 6.4 GRAMS PER DAY
     Route: 048
     Dates: start: 2018, end: 2018
  4. CALCIUM CARBONATE. [Concomitant]
     Active Substance: CALCIUM CARBONATE
     Dosage: 1 DD
  5. MACROGOL [Concomitant]
     Active Substance: POLYETHYLENE GLYCOLS
     Dosage: 2DD1 IF NECESSARY
  6. BUMETANIDE. [Concomitant]
     Active Substance: BUMETANIDE
     Dosage: 5 MG, Q8H
  7. PANTOPRAZOLE [Concomitant]
     Active Substance: PANTOPRAZOLE
     Dosage: 20 MG, Q12H
  8. SIMVASTATINE [Concomitant]
     Active Substance: SIMVASTATIN
     Dosage: 40 MG, QD
  9. VIDISIC CARBOGEL [Concomitant]
     Dosage: 3 TIMES A DAY IN BOTH EYES AS NEEDED
  10. LATANOPROST. [Concomitant]
     Active Substance: LATANOPROST
     Dosage: 1DD1 DROP IN BOTH EYES
  11. COLECALCIFEROL [Concomitant]
     Active Substance: CHOLECALCIFEROL
     Dosage: 800 IU, QD
  12. FERROUS FUMARATE [Concomitant]
     Active Substance: FERROUS FUMARATE
     Dosage: 200 MG, QD
  13. MIRCERA [Concomitant]
     Active Substance: METHOXY POLYETHYLENE GLYCOL-EPOETIN BETA
     Dosage: 1 DF, QOW
     Route: 058
  14. RESONIUM [Concomitant]
     Active Substance: SODIUM POLYSTYRENE SULFONATE

REACTIONS (2)
  - Rectal ulcer haemorrhage [Recovered/Resolved with Sequelae]
  - Crystal deposit intestine [Recovered/Resolved with Sequelae]
